FAERS Safety Report 14280397 (Version 1)
Quarter: 2017Q4

REPORT INFORMATION
  Report Type: Spontaneous
  Country: US (occurrence: US)
  Receive Date: 20171212
  Receipt Date: 20171212
  Transmission Date: 20180321
  Serious: No
  Sender: FDA-Public Use
  Company Number: None

PATIENT
  Age: 54 Year
  Sex: Female
  Weight: 56.25 kg

DRUGS (1)
  1. PROGESTERONE 100 MG [Suspect]
     Active Substance: PROGESTERONE
     Indication: OESTROGEN REPLACEMENT THERAPY
     Dosage: QUANTITY:180 CAPSULE(S); AT BEDTIME ORAL?
     Route: 048

REACTIONS (4)
  - Product substitution issue [None]
  - Drug effect decreased [None]
  - Insurance issue [None]
  - Product formulation issue [None]

NARRATIVE: CASE EVENT DATE: 20170801
